FAERS Safety Report 13503582 (Version 1)
Quarter: 2017Q2

REPORT INFORMATION
  Report Type: Spontaneous
  Country: US (occurrence: US)
  Receive Date: 20170502
  Receipt Date: 20170502
  Transmission Date: 20170830
  Serious: No
  Sender: FDA-Public Use
  Company Number: US-INCYTE CORPORATION-2017IN003379

PATIENT
  Sex: Female

DRUGS (2)
  1. JAKAFI [Suspect]
     Active Substance: RUXOLITINIB
     Dosage: 10 MG BID (TWO 5 MG TABS (10 MG) BID)
  2. JAKAFI [Suspect]
     Active Substance: RUXOLITINIB
     Dosage: TWO 5 MG TABS Q AM, ONE 5 MG TAB Q PM

REACTIONS (1)
  - Flatulence [Unknown]
